FAERS Safety Report 16149620 (Version 2)
Quarter: 2019Q2

REPORT INFORMATION
  Report Type: Report from Study
  Country: US (occurrence: US)
  Receive Date: 20190402
  Receipt Date: 20190403
  Transmission Date: 20190711
  Serious: Yes (Hospitalization, Other)
  Sender: FDA-Public Use
  Company Number: US-GILEAD-2019-0399781

PATIENT
  Age: 79 Year
  Sex: Female

DRUGS (2)
  1. RANOLAZINE. [Suspect]
     Active Substance: RANOLAZINE
     Indication: ANGINA PECTORIS
     Dosage: 500 MG, BID
     Route: 048
     Dates: start: 201809, end: 20190301
  2. RANOLAZINE. [Suspect]
     Active Substance: RANOLAZINE
     Dosage: 1000 MG, BID
     Route: 048
     Dates: end: 20190318

REACTIONS (3)
  - Product use issue [Not Recovered/Not Resolved]
  - Catheterisation cardiac [Recovered/Resolved]
  - Stent placement [Recovering/Resolving]

NARRATIVE: CASE EVENT DATE: 20190301
